FAERS Safety Report 8355988-3 (Version None)
Quarter: 2012Q2

REPORT INFORMATION
  Report Type: 
  Country: None (occurrence: None)
  Receive Date: 20120514
  Receipt Date: 20120502
  Transmission Date: 20120825
  Serious: Yes (Hospitalization)
  Sender: FDA-Public Use
  Company Number: US-JNJFOC-20120503706

PATIENT
  Sex: Female
  Weight: 84.82 kg

DRUGS (4)
  1. REMICADE [Suspect]
     Indication: CROHN'S DISEASE
     Route: 042
  2. REMICADE [Suspect]
     Route: 042
  3. REMICADE [Suspect]
     Indication: CRYSTAL ARTHROPATHY
     Route: 042
     Dates: start: 20120401
  4. REMICADE [Suspect]
     Route: 042
     Dates: start: 20120401

REACTIONS (4)
  - HAEMORRHAGE [None]
  - FALL [None]
  - FRACTURE [None]
  - RIB FRACTURE [None]
